FAERS Safety Report 6121248-4 (Version None)
Quarter: 2009Q1

REPORT INFORMATION
  Report Type: 
  Country: None (occurrence: None)
  Receive Date: 20090317
  Receipt Date: 20090309
  Transmission Date: 20090719
  Serious: Yes (Hospitalization, Other)
  Sender: FDA-Public Use
  Company Number: US-ELI_LILLY_AND_COMPANY-US200901004561

PATIENT
  Sex: Female
  Weight: 117 kg

DRUGS (11)
  1. HUMULIN N [Suspect]
     Indication: DIABETES MELLITUS
     Dosage: UNK, 2/D
     Dates: start: 20040101
  2. HUMULIN R [Suspect]
     Indication: DIABETES MELLITUS
     Dosage: UNK, AS NEEDED
     Dates: start: 20040101
  3. SPIRONOLACTONE [Concomitant]
     Indication: HYPERTENSION
     Dosage: 25 MG, DAILY (1/D)
     Dates: start: 20081126
  4. ASPIRIN [Concomitant]
     Dosage: 81 MG, UNK
     Route: 048
  5. BUMETANIDE [Concomitant]
     Indication: CARDIAC FAILURE CONGESTIVE
     Dosage: 1 MG, 2/D
     Route: 048
     Dates: start: 20081010
  6. METOPROLOL TARTRATE [Concomitant]
     Indication: HYPERTENSION
     Dosage: 25 MG, 2/D
     Dates: start: 20081010
  7. PLAVIX [Concomitant]
     Dosage: 75 MG, DAILY (1/D)
     Dates: start: 20081010
  8. COZAAR [Concomitant]
     Dosage: 50 MG, DAILY (1/D)
     Dates: start: 20081010
  9. LIPITOR [Concomitant]
     Dosage: 40 MG, DAILY (1/D)
     Dates: start: 20080915
  10. TETANUS VACCINE [Concomitant]
     Dates: start: 20080513
  11. PNEUMOCOCCAL VACCINE [Concomitant]
     Dates: start: 19991029

REACTIONS (9)
  - BLOOD GLUCOSE DECREASED [None]
  - BLOOD GLUCOSE INCREASED [None]
  - CATARACT [None]
  - DIABETIC FOOT [None]
  - DIABETIC RETINOPATHY [None]
  - DISCOMFORT [None]
  - STAPHYLOCOCCAL INFECTION [None]
  - VISUAL ACUITY REDUCED [None]
  - VITREOUS DETACHMENT [None]
